FAERS Safety Report 9200771 (Version 2)
Quarter: 2013Q2

REPORT INFORMATION
  Report Type: Spontaneous
  Country: DE (occurrence: DE)
  Receive Date: 20130401
  Receipt Date: 20130614
  Transmission Date: 20140414
  Serious: Yes (Hospitalization)
  Sender: FDA-Public Use
  Company Number: DE-AMGEN-DEUSP2013022319

PATIENT
  Age: 62 Year
  Sex: Male

DRUGS (18)
  1. ENBREL [Suspect]
     Indication: RHEUMATOID ARTHRITIS
     Dosage: 50 MG, WEEKLY
     Dates: start: 20000101
  2. ENBREL [Suspect]
     Indication: POLYARTHRITIS
     Dosage: UNK
  3. ENBREL [Suspect]
     Dosage: 50 MG, WEEKLY
     Route: 058
     Dates: start: 200309
  4. ASS [Concomitant]
     Dosage: UNK UNK, UNK
  5. HCT [Concomitant]
     Dosage: UNK UNK, UNK
  6. AMLODIPINE [Concomitant]
     Dosage: UNK UNK, UNK
  7. BISOHEXAL [Concomitant]
     Dosage: UNK UNK, UNK
  8. SIMVASTATIN [Concomitant]
     Dosage: UNK UNK, UNK
  9. OMEPRAZOL                          /00661201/ [Concomitant]
     Dosage: UNK UNK, UNK
  10. EUGLUCON [Concomitant]
     Dosage: UNK UNK, UNK
  11. METFORMIN [Concomitant]
     Dosage: UNK UNK, UNK
  12. IBUPROFEN [Concomitant]
     Dosage: UNK UNK, UNK
  13. INEGY [Concomitant]
     Dosage: UNK, AT NIGHT
  14. AMIODARONE [Concomitant]
     Dosage: UNK, IN THE MORNING
  15. PANTOZOL [Concomitant]
     Dosage: UNK, AT NIGHT
  16. TORASEMIDE [Concomitant]
     Dosage: UNK, IN THE MORNING
  17. RAMIPRIL [Concomitant]
     Dosage: UNK, IN THE MORNING AND AT NIGHT
  18. PLAVIX [Concomitant]
     Dosage: UNK, IN THE MORNING

REACTIONS (2)
  - Peripheral arterial occlusive disease [Unknown]
  - Venous stenosis [Recovered/Resolved with Sequelae]
